FAERS Safety Report 7686353-X (Version None)
Quarter: 2011Q3

REPORT INFORMATION
  Report Type: 
  Country: None (occurrence: None)
  Receive Date: 20110816
  Receipt Date: 20110809
  Transmission Date: 20111222
  Serious: Yes (Hospitalization)
  Sender: FDA-Public Use
  Company Number: JP-GLAXOSMITHKLINE-B0727064A

PATIENT
  Sex: Female

DRUGS (3)
  1. TEGRETOL [Suspect]
     Indication: PRODUCT USED FOR UNKNOWN INDICATION
     Dosage: 40MG PER DAY
     Route: 048
     Dates: start: 20110514, end: 20110613
  2. CLONAZEPAM [Concomitant]
     Indication: EPILEPSY
     Dosage: .2MG PER DAY
     Route: 048
     Dates: start: 20110611, end: 20110613
  3. LAMICTAL [Suspect]
     Indication: EPILEPSY
     Dosage: 1MG TWICE PER DAY
     Route: 048
     Dates: start: 20110611, end: 20110613

REACTIONS (3)
  - DRUG INTERACTION [None]
  - COMA [None]
  - DRUG LEVEL INCREASED [None]
